FAERS Safety Report 18986845 (Version 3)
Quarter: 2021Q1

REPORT INFORMATION
  Report Type: Spontaneous
  Country: TR (occurrence: TR)
  Receive Date: 20210309
  Receipt Date: 20210329
  Transmission Date: 20210420
  Serious: Yes (Hospitalization)
  Sender: FDA-Public Use
  Company Number: NVSC2021TR051975

PATIENT
  Age: 83 Year
  Sex: Male

DRUGS (2)
  1. ONEPTUS [Suspect]
     Active Substance: SACUBITRIL\VALSARTAN
     Indication: CARDIAC FAILURE
     Dosage: 1 DF, QD, STARTED 3?4 MONTHS BEFORE
     Route: 065
  2. BELOC [Concomitant]
     Indication: PRODUCT USED FOR UNKNOWN INDICATION
     Dosage: UNK
     Route: 065

REACTIONS (6)
  - Hypertension [Unknown]
  - Peripheral swelling [Recovered/Resolved]
  - Prostatic disorder [Unknown]
  - Gout [Unknown]
  - Product dose omission issue [Unknown]
  - Product supply issue [Unknown]
